FAERS Safety Report 9253437 (Version 2)
Quarter: 2013Q2

REPORT INFORMATION
  Report Type: Spontaneous
  Country: CH (occurrence: CH)
  Receive Date: 20130425
  Receipt Date: 20130502
  Transmission Date: 20140414
  Serious: Yes (Hospitalization)
  Sender: FDA-Public Use
  Company Number: CH-BIOGENIDEC-2013BI035294

PATIENT
  Sex: Female

DRUGS (5)
  1. AVONEX [Suspect]
     Indication: MULTIPLE SCLEROSIS
     Route: 030
     Dates: start: 20110510, end: 20130416
  2. EUTHYROX [Concomitant]
     Indication: HYPOTHYROIDISM
     Route: 048
     Dates: start: 2003
  3. PRAMIPEXOL (SIFROL) [Concomitant]
     Indication: RESTLESS LEGS SYNDROME
     Route: 048
     Dates: start: 2003
  4. SEROQUEL [Concomitant]
  5. BRUFEN [Concomitant]

REACTIONS (3)
  - Panic attack [Unknown]
  - Multiple sclerosis [Unknown]
  - Liver function test abnormal [Unknown]
